FAERS Safety Report 7319367-X (Version None)
Quarter: 2011Q1

REPORT INFORMATION
  Report Type: 
  Country: None (occurrence: None)
  Receive Date: 20110228
  Receipt Date: 20100330
  Transmission Date: 20110831
  Serious: Yes (Other)
  Sender: FDA-Public Use
  Company Number: A0845448A

PATIENT
  Age: 54 Year
  Sex: Female

DRUGS (10)
  1. ADVAIR DISKUS 100/50 [Concomitant]
  2. LAMICTAL [Suspect]
     Indication: BIPOLAR DISORDER
     Dosage: 50MG TWICE PER DAY
     Route: 048
     Dates: start: 20090601
  3. ALDACTONE [Concomitant]
  4. PROTONIX [Concomitant]
  5. VICOPROFEN [Concomitant]
  6. TORSEMIDE [Concomitant]
  7. VENTOLIN [Concomitant]
  8. TEMAZEPAM [Concomitant]
  9. MOBIC [Concomitant]
  10. AMITIZA [Concomitant]

REACTIONS (3)
  - ANAEMIA [None]
  - BLOOD IRON DECREASED [None]
  - HAEMATOCRIT DECREASED [None]
